FAERS Safety Report 12156449 (Version 1)
Quarter: 2016Q1

REPORT INFORMATION
  Report Type: Spontaneous
  Country: NO (occurrence: NO)
  Receive Date: 20160307
  Receipt Date: 20160307
  Transmission Date: 20160526
  Serious: Yes (Hospitalization)
  Sender: FDA-Public Use
  Company Number: NO-SA-2016SA039105

PATIENT
  Age: 81 Year
  Sex: Female

DRUGS (7)
  1. AMOXICILLIN. [Concomitant]
     Active Substance: AMOXICILLIN
     Indication: LUNG INFECTION
     Route: 048
     Dates: start: 20160128, end: 20160204
  2. ALENDRONIC ACID [Concomitant]
     Active Substance: ALENDRONIC ACID
     Route: 048
  3. CALCIGRAN FORTE [Concomitant]
     Dosage: 500 MG CALCIUM / 400 IE COLECALCIFEROL
     Route: 048
  4. KLEXANE [Suspect]
     Active Substance: ENOXAPARIN
     Indication: PULMONARY EMBOLISM
     Route: 058
     Dates: start: 20160125
  5. KLEXANE [Interacting]
     Active Substance: ENOXAPARIN
     Indication: PULMONARY EMBOLISM
     Route: 058
     Dates: start: 20160203
  6. ALBYL-E [Interacting]
     Active Substance: ASPIRIN\MAGNESIUM OXIDE
     Indication: AMNESIA
     Route: 048
     Dates: end: 20160203
  7. ZINACEF [Concomitant]
     Active Substance: CEFUROXIME SODIUM
     Indication: LUNG INFECTION
     Route: 041
     Dates: end: 20160128

REACTIONS (2)
  - Abdominal wall haematoma [Recovered/Resolved]
  - Drug interaction [Recovering/Resolving]

NARRATIVE: CASE EVENT DATE: 20160203
